FAERS Safety Report 6178891-6 (Version None)
Quarter: 2009Q2

REPORT INFORMATION
  Report Type: 
  Country: None (occurrence: None)
  Receive Date: 20090505
  Receipt Date: 20090429
  Transmission Date: 20091009
  Serious: Yes (Hospitalization)
  Sender: FDA-Public Use
  Company Number: US-PFIZER INC-2009205876

PATIENT
  Sex: Female

DRUGS (8)
  1. SOLU-MEDROL [Suspect]
     Indication: MULTIPLE SCLEROSIS
     Dosage: UNK
     Route: 042
     Dates: start: 20080801, end: 20080801
  2. PREDNISONE [Suspect]
     Indication: MULTIPLE SCLEROSIS
     Dosage: 60 MG, 1X/DAY
     Route: 048
     Dates: start: 20080801
  3. REBIF [Suspect]
     Indication: MULTIPLE SCLEROSIS
     Dosage: 8.8 MCG, 3 IN 1 WEEK
     Route: 058
     Dates: start: 20080815, end: 20080818
  4. REBIF [Suspect]
     Dosage: UNK
     Dates: start: 20080906
  5. CYMBALTA [Suspect]
     Indication: DEPRESSION
     Dosage: 60 MG, 1X/DAY
     Route: 048
  6. CYMBALTA [Suspect]
     Indication: NEURALGIA
  7. ZANAFLEX [Suspect]
     Indication: MUSCLE SPASTICITY
     Dosage: 2 MG, 2X/DAY
     Route: 048
  8. MECLIZINE [Concomitant]
     Dosage: 25 MG, 1 IN 6 HR

REACTIONS (5)
  - ASTHENIA [None]
  - BLOOD POTASSIUM DECREASED [None]
  - DISORIENTATION [None]
  - HYPOTENSION [None]
  - TREMOR [None]
